FAERS Safety Report 11056672 (Version 1)
Quarter: 2015Q2

REPORT INFORMATION
  Report Type: Spontaneous
  Country: US (occurrence: US)
  Receive Date: 20150422
  Receipt Date: 20150422
  Transmission Date: 20150821
  Serious: No
  Sender: FDA-Public Use
  Company Number: US-TARO-2014TAR00336

PATIENT
  Age: 28 Year
  Sex: Female
  Weight: 45.35 kg

DRUGS (2)
  1. ORTHO CYCLEN [Concomitant]
     Active Substance: ETHINYL ESTRADIOL\NORGESTIMATE
     Dosage: UNK, 1X/DAY
  2. LAGICAM ANTIFUNGAL [Suspect]
     Active Substance: MICONAZOLE NITRATE
     Indication: FUNGAL INFECTION
     Dosage: 1 DOSAGE UNITS, 1X/DAY
     Route: 067
     Dates: start: 20140903, end: 20140905

REACTIONS (1)
  - Vaginal haemorrhage [Recovered/Resolved]

NARRATIVE: CASE EVENT DATE: 20140906
